FAERS Safety Report 7674805-8 (Version None)
Quarter: 2011Q3

REPORT INFORMATION
  Report Type: 
  Country: None (occurrence: None)
  Receive Date: 20110810
  Receipt Date: 20110805
  Transmission Date: 20111222
  Serious: Yes (Hospitalization)
  Sender: FDA-Public Use
  Company Number: DE-GLAXOSMITHKLINE-D0072244A

PATIENT
  Sex: Female

DRUGS (1)
  1. ZYBAN [Suspect]
     Indication: EX-TOBACCO USER
     Dosage: 150MG PER DAY
     Route: 048
     Dates: start: 20110711, end: 20110728

REACTIONS (7)
  - PRODUCT QUALITY ISSUE [None]
  - HYPERSENSITIVITY [None]
  - RASH GENERALISED [None]
  - DRUG HYPERSENSITIVITY [None]
  - ERYTHEMA [None]
  - URTICARIA [None]
  - PRURITUS GENERALISED [None]
